FAERS Safety Report 10444221 (Version 1)
Quarter: 2014Q3

REPORT INFORMATION
  Report Type: Spontaneous
  Country: US (occurrence: US)
  Receive Date: 20140910
  Receipt Date: 20140910
  Transmission Date: 20150326
  Serious: Yes (Hospitalization, Other)
  Sender: FDA-Public Use
  Company Number: US-UCBSA-2014010921

PATIENT
  Sex: Female

DRUGS (9)
  1. LOPRESSOR [Concomitant]
     Active Substance: METOPROLOL TARTRATE
     Indication: HEART RATE INCREASED
     Dosage: 50 MG, 2X/DAY (BID)
     Route: 048
     Dates: start: 201407
  2. ZANTAC [Concomitant]
     Active Substance: RANITIDINE HYDROCHLORIDE
     Indication: ACIDOSIS
     Dosage: 150 MG, ONCE DAILY (QD)
     Route: 048
     Dates: start: 201407
  3. KEPPRA [Suspect]
     Active Substance: LEVETIRACETAM
     Indication: CONVULSION
     Dosage: UNK DOSE
     Route: 042
     Dates: start: 201407, end: 201407
  4. VIMPAT [Suspect]
     Active Substance: LACOSAMIDE
     Indication: CONVULSION PROPHYLAXIS
     Dosage: 200 MG, 2X/DAY (BID)
     Route: 048
     Dates: start: 201407
  5. KEPPRA [Suspect]
     Active Substance: LEVETIRACETAM
     Dosage: 1000MG IN AM AND 1500MG AT NIGHT
     Route: 048
     Dates: start: 201407
  6. ZOFRAN [Concomitant]
     Active Substance: ONDANSETRON HYDROCHLORIDE
     Indication: NAUSEA
     Dosage: 4 MG, 2X/DAY (BID)
     Route: 048
  7. KEPPRA [Suspect]
     Active Substance: LEVETIRACETAM
     Indication: CONVULSION PROPHYLAXIS
     Dosage: 500 MG, 2X/DAY (BID), STOPPED 2-3 YEARS AGO
     Dates: start: 2001
  8. ZYPREXA [Concomitant]
     Active Substance: OLANZAPINE
     Indication: DEPRESSION
     Dosage: 5 MG, ONCE DAILY (QD)
     Dates: start: 201407
  9. ATIVAN [Concomitant]
     Active Substance: LORAZEPAM
     Indication: ANXIETY
     Dosage: 1 TAB Q 8 HOURS PRN
     Route: 048
     Dates: start: 201407

REACTIONS (9)
  - Pharyngeal oedema [Recovered/Resolved]
  - Cognitive disorder [Not Recovered/Not Resolved]
  - Convulsion [Recovered/Resolved]
  - Nerve injury [Not Recovered/Not Resolved]
  - Depression [Recovering/Resolving]
  - Heart rate increased [Recovering/Resolving]
  - Frustration [Recovering/Resolving]
  - Anxiety [Recovering/Resolving]
  - Generalised tonic-clonic seizure [Recovered/Resolved]

NARRATIVE: CASE EVENT DATE: 201407
